FAERS Safety Report 14455057 (Version 4)
Quarter: 2018Q2

REPORT INFORMATION
  Report Type: Spontaneous
  Country: US (occurrence: US)
  Receive Date: 20180129
  Receipt Date: 20180403
  Transmission Date: 20180711
  Serious: Yes (Hospitalization)
  Sender: FDA-Public Use
  Company Number: US-ACTELION-A-US2018-166461

PATIENT
  Age: 78 Year
  Sex: Female

DRUGS (1)
  1. OPSUMIT [Suspect]
     Active Substance: MACITENTAN
     Indication: PULMONARY ARTERIAL HYPERTENSION
     Dosage: 10 MG, QD
     Route: 048
     Dates: start: 20150527

REACTIONS (11)
  - Dyspnoea [Recovered/Resolved with Sequelae]
  - Obstructive airways disorder [Unknown]
  - Hypoxia [Recovered/Resolved with Sequelae]
  - Cough [Recovered/Resolved with Sequelae]
  - Hypertension [Unknown]
  - Acute respiratory failure [Recovered/Resolved with Sequelae]
  - Fibrosis [Recovered/Resolved with Sequelae]
  - Chronic obstructive pulmonary disease [Unknown]
  - Drug dose omission [Unknown]
  - Condition aggravated [Recovered/Resolved with Sequelae]
  - Oedema [Unknown]

NARRATIVE: CASE EVENT DATE: 20171214
